FAERS Safety Report 14931376 (Version 4)
Quarter: 2019Q1

REPORT INFORMATION
  Report Type: Report from Study
  Country: None (occurrence: US)
  Receive Date: 20180524
  Receipt Date: 20190315
  Transmission Date: 20190417
  Serious: Yes (Other)
  Sender: FDA-Public Use
  Company Number: US-ABBVIE-18K-163-2363800-00

PATIENT
  Age: 69 Year
  Sex: Male
  Weight: 111.23 kg

DRUGS (7)
  1. LISINOPRIL HCTZ [Concomitant]
     Active Substance: HYDROCHLOROTHIAZIDE\LISINOPRIL
     Indication: HYPERTENSION
  2. ASPIRIN. [Concomitant]
     Active Substance: ASPIRIN
     Indication: CARDIAC DISORDER
  3. ZYRTEC [Concomitant]
     Active Substance: CETIRIZINE HYDROCHLORIDE
     Indication: HYPERSENSITIVITY
  4. FLUTICASONE. [Concomitant]
     Active Substance: FLUTICASONE
     Indication: HYPERSENSITIVITY
  5. HUMIRA [Suspect]
     Active Substance: ADALIMUMAB
     Indication: PSORIASIS
     Route: 058
     Dates: start: 2012
  6. ATORVASTATIN [Concomitant]
     Active Substance: ATORVASTATIN
     Indication: BLOOD CHOLESTEROL INCREASED
  7. MONTELUKAST [Concomitant]
     Active Substance: MONTELUKAST SODIUM
     Indication: CHRONIC OBSTRUCTIVE PULMONARY DISEASE

REACTIONS (11)
  - Basal cell carcinoma [Recovered/Resolved]
  - Fungal skin infection [Recovered/Resolved]
  - Polycythaemia vera [Not Recovered/Not Resolved]
  - Skin lesion [Recovering/Resolving]
  - Rash [Not Recovered/Not Resolved]
  - Cyst [Recovered/Resolved]
  - Squamous cell carcinoma [Recovered/Resolved]
  - Photosensitivity reaction [Unknown]
  - Red blood cell count increased [Recovering/Resolving]
  - Haemoglobin increased [Recovering/Resolving]
  - Benign neoplasm of skin [Unknown]

NARRATIVE: CASE EVENT DATE: 201710
